FAERS Safety Report 9963028 (Version 4)
Quarter: 2014Q1

REPORT INFORMATION
  Report Type: Spontaneous
  Country: US (occurrence: US)
  Receive Date: 20140305
  Receipt Date: 20140320
  Transmission Date: 20141002
  Serious: Yes (Hospitalization, Other)
  Sender: FDA-Public Use
  Company Number: US-BAXTER-2014BAX010944

PATIENT
  Sex: Male

DRUGS (4)
  1. DIANEAL LOW CALCIUM [Suspect]
     Indication: PERITONEAL DIALYSIS
     Route: 033
     Dates: start: 201304, end: 2014
  2. DIANEAL LOW CALCIUM [Suspect]
     Route: 033
     Dates: start: 20140312
  3. DIANEAL LOW CALCIUM [Suspect]
     Indication: PERITONEAL DIALYSIS
     Route: 033
     Dates: start: 20130424, end: 2014
  4. DIANEAL LOW CALCIUM [Suspect]
     Route: 033
     Dates: start: 20140312

REACTIONS (2)
  - Lip and/or oral cavity cancer [Recovering/Resolving]
  - Vomiting [Unknown]
